FAERS Safety Report 9059787 (Version 1)
Quarter: 2013Q1

REPORT INFORMATION
  Report Type: Spontaneous
  Country: BR (occurrence: BR)
  Receive Date: 20130212
  Receipt Date: 20130212
  Transmission Date: 20140127
  Serious: Yes (Other)
  Sender: FDA-Public Use
  Company Number: BR-JNJFOC-20130115137

PATIENT
  Age: 42 Year
  Sex: Male
  Weight: 58 kg

DRUGS (6)
  1. HALDOL DECANOATE [Suspect]
     Indication: SCHIZOPHRENIA
     Route: 030
     Dates: start: 20130121
  2. HALDOL DECANOATE [Suspect]
     Indication: SCHIZOPHRENIA
     Route: 030
     Dates: start: 201210, end: 20130120
  3. FENERGAN [Concomitant]
     Route: 065
  4. AMPLICTIL [Concomitant]
     Indication: SLEEP DISORDER THERAPY
     Route: 065
  5. BIPERIDEN [Concomitant]
     Indication: SCHIZOPHRENIA
     Route: 065
     Dates: start: 201301
  6. RISPERIDONE [Concomitant]
     Indication: SCHIZOPHRENIA
     Route: 048

REACTIONS (7)
  - Loss of consciousness [Recovered/Resolved]
  - Tremor [Recovered/Resolved]
  - Thirst decreased [Recovered/Resolved]
  - Vomiting [Recovered/Resolved]
  - Urine output decreased [Recovered/Resolved]
  - Drug prescribing error [Not Recovered/Not Resolved]
  - Medication error [Not Recovered/Not Resolved]
